FAERS Safety Report 9831573 (Version 3)
Quarter: 2014Q1

REPORT INFORMATION
  Report Type: Spontaneous
  Country: FR (occurrence: FR)
  Receive Date: 20140121
  Receipt Date: 20140320
  Transmission Date: 20141002
  Serious: Yes (Death, Hospitalization)
  Sender: FDA-Public Use
  Company Number: FR-JNJFOC-20140105335

PATIENT
  Age: 82 Year
  Sex: Male
  Weight: 68 kg

DRUGS (12)
  1. ZYTIGA [Suspect]
     Indication: PROSTATE CANCER
     Route: 048
     Dates: start: 20130909, end: 20131119
  2. DOLIPRANE [Concomitant]
     Indication: PRODUCT USED FOR UNKNOWN INDICATION
     Route: 065
  3. UNSPECIFIED CREAMS NOS [Concomitant]
     Indication: PRODUCT USED FOR UNKNOWN INDICATION
     Route: 065
  4. DIFFU K [Concomitant]
     Indication: PRODUCT USED FOR UNKNOWN INDICATION
     Route: 065
  5. TARDYFERON [Concomitant]
     Indication: PRODUCT USED FOR UNKNOWN INDICATION
     Route: 065
  6. DECAPEPTYL [Concomitant]
     Route: 065
     Dates: end: 201309
  7. CASODEX [Concomitant]
     Route: 065
     Dates: end: 201309
  8. CHLORAMINOPHENE [Concomitant]
     Indication: PRODUCT USED FOR UNKNOWN INDICATION
     Dosage: 1-0-0
     Route: 065
  9. CORDARONE [Concomitant]
     Indication: PRODUCT USED FOR UNKNOWN INDICATION
     Route: 065
  10. LASILIX [Concomitant]
     Indication: PRODUCT USED FOR UNKNOWN INDICATION
     Dosage: 40
     Route: 065
  11. OXYGEN THERAPY [Concomitant]
     Route: 065
  12. CALCIPARINE [Concomitant]
     Indication: PRODUCT USED FOR UNKNOWN INDICATION
     Route: 065

REACTIONS (5)
  - Myocardial infarction [Fatal]
  - Anaemia [Unknown]
  - Prostate cancer [Unknown]
  - Atrial fibrillation [Not Recovered/Not Resolved]
  - Cardiac failure [Not Recovered/Not Resolved]
